FAERS Safety Report 24181157 (Version 1)
Quarter: 2024Q3

REPORT INFORMATION
  Report Type: Report from Study
  Country: US (occurrence: US)
  Receive Date: 20240806
  Receipt Date: 20240806
  Transmission Date: 20241017
  Serious: Yes (Other)
  Sender: ABBVIE
  Company Number: US-ABBVIE-5860658

PATIENT
  Sex: Male

DRUGS (2)
  1. HUMIRA [Suspect]
     Active Substance: ADALIMUMAB
     Indication: Rheumatoid arthritis
     Dosage: CITRATE FREE?LAST ADMIN DATE-2024
     Route: 058
     Dates: start: 20240511
  2. HUMIRA [Suspect]
     Active Substance: ADALIMUMAB
     Dosage: CITRATE FREE?FIRST ADMIN DATE-2024
     Route: 058

REACTIONS (3)
  - Abdominal hernia [Unknown]
  - Post procedural contusion [Recovering/Resolving]
  - Injection site irritation [Recovered/Resolved]

NARRATIVE: CASE EVENT DATE: 20240101
